FAERS Safety Report 15622936 (Version 3)
Quarter: 2018Q4

REPORT INFORMATION
  Report Type: Spontaneous
  Country: US (occurrence: US)
  Receive Date: 20181115
  Receipt Date: 20181214
  Transmission Date: 20190205
  Serious: No
  Sender: FDA-Public Use
  Company Number: US-JNJFOC-20181044520

PATIENT
  Sex: Female
  Weight: 136.08 kg

DRUGS (1)
  1. TREMFYA [Suspect]
     Active Substance: GUSELKUMAB
     Indication: PSORIASIS
     Route: 058
     Dates: start: 20180809, end: 20180907

REACTIONS (4)
  - Psoriasis [Unknown]
  - Condition aggravated [Unknown]
  - Muscular weakness [Recovered/Resolved]
  - Drug ineffective [Unknown]
